FAERS Safety Report 8789624 (Version 1)
Quarter: 2012Q4

REPORT INFORMATION
  Report Type: Spontaneous
  Country: US (occurrence: None)
  Receive Date: 20120910
  Receipt Date: 20120910
  Transmission Date: 20130627
  Serious: Yes (Other)
  Sender: FDA-Public Use
  Company Number: None

PATIENT
  Age: 39 Year
  Sex: Female
  Weight: 92 kg

DRUGS (3)
  1. VANCOMYCIN [Suspect]
     Indication: CELLULITIS
     Route: 040
  2. INSULIN ASPART [Concomitant]
  3. INSULIN GLARGINE [Concomitant]

REACTIONS (9)
  - Swelling face [None]
  - Oedema peripheral [None]
  - Pruritus [None]
  - Dyspnoea [None]
  - Hyperhidrosis [None]
  - Paraesthesia [None]
  - Tachycardia [None]
  - Blood pressure immeasurable [None]
  - Infusion related reaction [None]
